FAERS Safety Report 5989657-1 (Version None)
Quarter: 2008Q4

REPORT INFORMATION
  Report Type: 
  Country: None (occurrence: None)
  Receive Date: 20081208
  Receipt Date: 20081121
  Transmission Date: 20090506
  Serious: No
  Sender: FDA-Public Use
  Company Number: 2008-187943-NL

PATIENT
  Age: 74 Year
  Sex: Male

DRUGS (6)
  1. MIRTAZAPINE [Suspect]
     Dosage: 30 MG ONCE
     Dates: start: 20081108
  2. CYCLOSPORINE [Concomitant]
  3. AZATHIOPRINE [Concomitant]
  4. METHADONE HCL [Concomitant]
  5. AMLODIPINE BESILATE [Concomitant]
  6. ASPRIRIN C [Concomitant]

REACTIONS (11)
  - ABNORMAL BEHAVIOUR [None]
  - ANOREXIA [None]
  - ASTHENIA [None]
  - BALANCE DISORDER [None]
  - CONSTIPATION [None]
  - FATIGUE [None]
  - IMPAIRED DRIVING ABILITY [None]
  - MALAISE [None]
  - POLYDIPSIA [None]
  - SOMNOLENCE [None]
  - TREMOR [None]
